FAERS Safety Report 19691658 (Version 3)
Quarter: 2025Q3

REPORT INFORMATION
  Report Type: Spontaneous
  Country: EU (occurrence: EU)
  Receive Date: 20210812
  Receipt Date: 20250806
  Transmission Date: 20251021
  Serious: Yes (Hospitalization, Other)
  Sender: MYLAN
  Company Number: EU-KRKA-ES2021K01483LIT

PATIENT
  Age: 57 Year
  Sex: Male

DRUGS (76)
  1. METHOTREXATE [Interacting]
     Active Substance: METHOTREXATE
     Indication: Rheumatoid arthritis
  2. METHOTREXATE [Interacting]
     Active Substance: METHOTREXATE
     Route: 058
  3. METHOTREXATE [Interacting]
     Active Substance: METHOTREXATE
     Route: 058
  4. METHOTREXATE [Interacting]
     Active Substance: METHOTREXATE
  5. AMOXICILLIN\CLAVULANIC ACID [Interacting]
     Active Substance: AMOXICILLIN\CLAVULANIC ACID
     Indication: Respiratory tract infection
  6. AMOXICILLIN\CLAVULANIC ACID [Interacting]
     Active Substance: AMOXICILLIN\CLAVULANIC ACID
  7. AMOXICILLIN\CLAVULANIC ACID [Interacting]
     Active Substance: AMOXICILLIN\CLAVULANIC ACID
     Route: 065
  8. AMOXICILLIN\CLAVULANIC ACID [Interacting]
     Active Substance: AMOXICILLIN\CLAVULANIC ACID
     Route: 065
  9. AMOXICILLIN\CLAVULANIC ACID [Interacting]
     Active Substance: AMOXICILLIN\CLAVULANIC ACID
     Dosage: 100 MILLIGRAM, BID (TWO TIMES A DAY), (200 MILLIGRAM, QD)
     Dates: start: 201808
  10. AMOXICILLIN\CLAVULANIC ACID [Interacting]
     Active Substance: AMOXICILLIN\CLAVULANIC ACID
     Dosage: 100 MILLIGRAM, BID (TWO TIMES A DAY), (200 MILLIGRAM, QD)
     Dates: start: 201808
  11. AMOXICILLIN\CLAVULANIC ACID [Interacting]
     Active Substance: AMOXICILLIN\CLAVULANIC ACID
     Dosage: 100 MILLIGRAM, BID (TWO TIMES A DAY), (200 MILLIGRAM, QD)
     Route: 065
     Dates: start: 201808
  12. AMOXICILLIN\CLAVULANIC ACID [Interacting]
     Active Substance: AMOXICILLIN\CLAVULANIC ACID
     Dosage: 100 MILLIGRAM, BID (TWO TIMES A DAY), (200 MILLIGRAM, QD)
     Route: 065
     Dates: start: 201808
  13. SULFASALAZINE [Interacting]
     Active Substance: SULFASALAZINE
     Indication: Rheumatoid arthritis
     Dosage: 500 MILLIGRAM, QD (ONCE A DAY)
     Dates: start: 201807, end: 201808
  14. SULFASALAZINE [Interacting]
     Active Substance: SULFASALAZINE
     Dosage: 500 MILLIGRAM, QD (ONCE A DAY)
     Route: 065
     Dates: start: 201807, end: 201808
  15. SULFASALAZINE [Interacting]
     Active Substance: SULFASALAZINE
     Dosage: 500 MILLIGRAM, QD (ONCE A DAY)
     Route: 065
     Dates: start: 201807, end: 201808
  16. SULFASALAZINE [Interacting]
     Active Substance: SULFASALAZINE
     Dosage: 500 MILLIGRAM, QD (ONCE A DAY)
     Dates: start: 201807, end: 201808
  17. FLUTICASONE FUROATE\VILANTEROL TRIFENATATE [Concomitant]
     Active Substance: FLUTICASONE FUROATE\VILANTEROL TRIFENATATE
     Indication: Product used for unknown indication
     Dosage: 1 DOSAGE FORM, QD,184/22 UG ONE INHALATION PER DAY
  18. FLUTICASONE FUROATE\VILANTEROL TRIFENATATE [Concomitant]
     Active Substance: FLUTICASONE FUROATE\VILANTEROL TRIFENATATE
     Dosage: 1 DOSAGE FORM, QD,184/22 UG ONE INHALATION PER DAY
     Route: 055
  19. FLUTICASONE FUROATE\VILANTEROL TRIFENATATE [Concomitant]
     Active Substance: FLUTICASONE FUROATE\VILANTEROL TRIFENATATE
     Dosage: 1 DOSAGE FORM, QD,184/22 UG ONE INHALATION PER DAY
     Route: 055
  20. FLUTICASONE FUROATE\VILANTEROL TRIFENATATE [Concomitant]
     Active Substance: FLUTICASONE FUROATE\VILANTEROL TRIFENATATE
     Dosage: 1 DOSAGE FORM, QD,184/22 UG ONE INHALATION PER DAY
  21. MOMETASONE [Concomitant]
     Active Substance: MOMETASONE
     Indication: Product used for unknown indication
     Dosage: 200 MICROGRAM, QD, 200 UG, PER DAY
  22. MOMETASONE [Concomitant]
     Active Substance: MOMETASONE
     Dosage: 200 MICROGRAM, QD, 200 UG, PER DAY
     Route: 065
  23. MOMETASONE [Concomitant]
     Active Substance: MOMETASONE
     Dosage: 200 MICROGRAM, QD, 200 UG, PER DAY
     Route: 065
  24. MOMETASONE [Concomitant]
     Active Substance: MOMETASONE
     Dosage: 200 MICROGRAM, QD, 200 UG, PER DAY
  25. HYDROXYCHLOROQUINE [Concomitant]
     Active Substance: HYDROXYCHLOROQUINE
     Indication: Rheumatoid arthritis
     Dosage: 400 MILLIGRAM, QD, 200 MG, 2X PER DAY
  26. HYDROXYCHLOROQUINE [Concomitant]
     Active Substance: HYDROXYCHLOROQUINE
     Dosage: 400 MILLIGRAM, QD, 200 MG, 2X PER DAY
     Route: 065
  27. HYDROXYCHLOROQUINE [Concomitant]
     Active Substance: HYDROXYCHLOROQUINE
     Dosage: 400 MILLIGRAM, QD, 200 MG, 2X PER DAY
     Route: 065
  28. HYDROXYCHLOROQUINE [Concomitant]
     Active Substance: HYDROXYCHLOROQUINE
     Dosage: 400 MILLIGRAM, QD, 200 MG, 2X PER DAY
  29. OLMESARTAN [Concomitant]
     Active Substance: OLMESARTAN
     Indication: Product used for unknown indication
  30. OLMESARTAN [Concomitant]
     Active Substance: OLMESARTAN
     Route: 065
  31. OLMESARTAN [Concomitant]
     Active Substance: OLMESARTAN
     Route: 065
  32. OLMESARTAN [Concomitant]
     Active Substance: OLMESARTAN
  33. ARIPIPRAZOLE [Concomitant]
     Active Substance: ARIPIPRAZOLE
     Indication: Product used for unknown indication
     Dosage: 5 MILLIGRAM, QD (ONCE A DAY)
  34. ARIPIPRAZOLE [Concomitant]
     Active Substance: ARIPIPRAZOLE
     Dosage: 5 MILLIGRAM, QD (ONCE A DAY)
  35. ARIPIPRAZOLE [Concomitant]
     Active Substance: ARIPIPRAZOLE
     Dosage: 5 MILLIGRAM, QD (ONCE A DAY)
     Route: 065
  36. ARIPIPRAZOLE [Concomitant]
     Active Substance: ARIPIPRAZOLE
     Dosage: 5 MILLIGRAM, QD (ONCE A DAY)
     Route: 065
  37. ARIPIPRAZOLE [Concomitant]
     Active Substance: ARIPIPRAZOLE
     Dosage: 1 DOSAGE FORM, ONCE A DAY(184/22 MCG ONE INHALATION/DAY)
  38. ARIPIPRAZOLE [Concomitant]
     Active Substance: ARIPIPRAZOLE
     Dosage: 1 DOSAGE FORM, ONCE A DAY(184/22 MCG ONE INHALATION/DAY)
  39. ARIPIPRAZOLE [Concomitant]
     Active Substance: ARIPIPRAZOLE
     Dosage: 1 DOSAGE FORM, ONCE A DAY(184/22 MCG ONE INHALATION/DAY)
     Route: 065
  40. ARIPIPRAZOLE [Concomitant]
     Active Substance: ARIPIPRAZOLE
     Dosage: 1 DOSAGE FORM, ONCE A DAY(184/22 MCG ONE INHALATION/DAY)
     Route: 065
  41. RISEDRONIC ACID [Concomitant]
     Active Substance: RISEDRONIC ACID
     Indication: Product used for unknown indication
  42. RISEDRONIC ACID [Concomitant]
     Active Substance: RISEDRONIC ACID
     Route: 065
  43. RISEDRONIC ACID [Concomitant]
     Active Substance: RISEDRONIC ACID
     Route: 065
  44. RISEDRONIC ACID [Concomitant]
     Active Substance: RISEDRONIC ACID
  45. OMEPRAZOLE [Concomitant]
     Active Substance: OMEPRAZOLE
     Indication: Product used for unknown indication
  46. OMEPRAZOLE [Concomitant]
     Active Substance: OMEPRAZOLE
     Route: 065
  47. OMEPRAZOLE [Concomitant]
     Active Substance: OMEPRAZOLE
     Route: 065
  48. OMEPRAZOLE [Concomitant]
     Active Substance: OMEPRAZOLE
  49. MONTELUKAST [Concomitant]
     Active Substance: MONTELUKAST
     Indication: Respiratory tract infection
     Dosage: 200 MILLIGRAM, QD (ONCE A DAY)
  50. MONTELUKAST [Concomitant]
     Active Substance: MONTELUKAST
     Dosage: 200 MILLIGRAM, QD (ONCE A DAY)
  51. MONTELUKAST [Concomitant]
     Active Substance: MONTELUKAST
     Dosage: 200 MILLIGRAM, QD (ONCE A DAY)
     Route: 065
  52. MONTELUKAST [Concomitant]
     Active Substance: MONTELUKAST
     Dosage: 200 MILLIGRAM, QD (ONCE A DAY)
     Route: 065
  53. MONTELUKAST [Concomitant]
     Active Substance: MONTELUKAST
     Dosage: 10 MILLIGRAM, QD (ONCE A DAY)
  54. MONTELUKAST [Concomitant]
     Active Substance: MONTELUKAST
     Dosage: 10 MILLIGRAM, QD (ONCE A DAY)
  55. MONTELUKAST [Concomitant]
     Active Substance: MONTELUKAST
     Dosage: 10 MILLIGRAM, QD (ONCE A DAY)
     Route: 065
  56. MONTELUKAST [Concomitant]
     Active Substance: MONTELUKAST
     Dosage: 10 MILLIGRAM, QD (ONCE A DAY)
     Route: 065
  57. PREDNISONE [Concomitant]
     Active Substance: PREDNISONE
     Indication: Asthma
     Dosage: 20 MILLIGRAM, QD, MORE THAN 30 YEARS
  58. PREDNISONE [Concomitant]
     Active Substance: PREDNISONE
     Dosage: 20 MILLIGRAM, QD, MORE THAN 30 YEARS
     Route: 065
  59. PREDNISONE [Concomitant]
     Active Substance: PREDNISONE
     Dosage: 20 MILLIGRAM, QD, MORE THAN 30 YEARS
     Route: 065
  60. PREDNISONE [Concomitant]
     Active Substance: PREDNISONE
     Dosage: 20 MILLIGRAM, QD, MORE THAN 30 YEARS
  61. TAPENTADOL [Concomitant]
     Active Substance: TAPENTADOL
     Indication: Product used for unknown indication
     Dosage: 100 MILLIGRAM, QD
  62. TAPENTADOL [Concomitant]
     Active Substance: TAPENTADOL
     Dosage: 100 MILLIGRAM, QD
  63. TAPENTADOL [Concomitant]
     Active Substance: TAPENTADOL
     Dosage: 100 MILLIGRAM, QD
     Route: 065
  64. TAPENTADOL [Concomitant]
     Active Substance: TAPENTADOL
     Dosage: 100 MILLIGRAM, QD
     Route: 065
  65. TAPENTADOL [Concomitant]
     Active Substance: TAPENTADOL
     Dosage: 100 MILLIGRAM, BID (TWO TIMES A DAY), (200 MILLIGRAM, QD)
  66. TAPENTADOL [Concomitant]
     Active Substance: TAPENTADOL
     Dosage: 100 MILLIGRAM, BID (TWO TIMES A DAY), (200 MILLIGRAM, QD)
  67. TAPENTADOL [Concomitant]
     Active Substance: TAPENTADOL
     Dosage: 100 MILLIGRAM, BID (TWO TIMES A DAY), (200 MILLIGRAM, QD)
     Route: 065
  68. TAPENTADOL [Concomitant]
     Active Substance: TAPENTADOL
     Dosage: 100 MILLIGRAM, BID (TWO TIMES A DAY), (200 MILLIGRAM, QD)
     Route: 065
  69. COLCHICINE [Concomitant]
     Active Substance: COLCHICINE
     Indication: Rheumatoid arthritis
  70. COLCHICINE [Concomitant]
     Active Substance: COLCHICINE
     Route: 065
  71. COLCHICINE [Concomitant]
     Active Substance: COLCHICINE
     Route: 065
  72. COLCHICINE [Concomitant]
     Active Substance: COLCHICINE
  73. CALCIUM CARBONATE\CHOLECALCIFEROL [Concomitant]
     Active Substance: CALCIUM CARBONATE\CHOLECALCIFEROL
     Indication: Product used for unknown indication
  74. CALCIUM CARBONATE\CHOLECALCIFEROL [Concomitant]
     Active Substance: CALCIUM CARBONATE\CHOLECALCIFEROL
     Route: 065
  75. CALCIUM CARBONATE\CHOLECALCIFEROL [Concomitant]
     Active Substance: CALCIUM CARBONATE\CHOLECALCIFEROL
     Route: 065
  76. CALCIUM CARBONATE\CHOLECALCIFEROL [Concomitant]
     Active Substance: CALCIUM CARBONATE\CHOLECALCIFEROL

REACTIONS (9)
  - Drug reaction with eosinophilia and systemic symptoms [Recovered/Resolved]
  - Respiratory tract infection [Unknown]
  - Dyspnoea [Recovered/Resolved]
  - Chest pain [Recovered/Resolved]
  - Discomfort [Recovered/Resolved]
  - Temperature regulation disorder [Recovered/Resolved]
  - Drug interaction [Recovered/Resolved]
  - Rash macular [Recovered/Resolved]
  - Pruritus [Recovered/Resolved]

NARRATIVE: CASE EVENT DATE: 20180801
